FAERS Safety Report 16038306 (Version 2)
Quarter: 2019Q1

REPORT INFORMATION
  Report Type: Spontaneous
  Country: GB (occurrence: GB)
  Receive Date: 20190305
  Receipt Date: 20190313
  Transmission Date: 20190418
  Serious: Yes (Hospitalization, Congenital Anomaly, Other)
  Sender: FDA-Public Use
  Company Number: PHHY2019GB044974

PATIENT
  Sex: Male
  Weight: .8 kg

DRUGS (2)
  1. BETAMETHASONE. [Suspect]
     Active Substance: BETAMETHASONE
     Indication: FOETAL EXPOSURE DURING PREGNANCY
     Dosage: UNK
     Route: 064
  2. CLINDAMYCIN. [Suspect]
     Active Substance: CLINDAMYCIN
     Indication: FOETAL EXPOSURE DURING PREGNANCY
     Route: 064

REACTIONS (17)
  - C-reactive protein increased [Unknown]
  - Erythema [Unknown]
  - Skin lesion [Unknown]
  - Low birth weight baby [Unknown]
  - Keratitis [Unknown]
  - Rash [Recovering/Resolving]
  - Foetal exposure during pregnancy [Unknown]
  - Vertical infection transmission [Unknown]
  - Periorbital disorder [Unknown]
  - Skin erosion [Recovered/Resolved]
  - Scar [Unknown]
  - Scab [Recovering/Resolving]
  - Skin ulcer [Unknown]
  - Eyelid function disorder [Unknown]
  - Premature baby [Unknown]
  - Congenital herpes simplex infection [Recovered/Resolved]
  - Atrophy [Unknown]
